FAERS Safety Report 6466625-7 (Version None)
Quarter: 2009Q4

REPORT INFORMATION
  Report Type: 
  Country: None (occurrence: None)
  Receive Date: 20091202
  Receipt Date: 20081111
  Transmission Date: 20100525
  Serious: No
  Sender: FDA-Public Use
  Company Number: US-AMGEN-KDL318450

PATIENT

DRUGS (10)
  1. ENBREL [Suspect]
     Indication: RHEUMATOID ARTHRITIS
     Route: 058
  2. EFFEXOR [Concomitant]
  3. BUSPAR [Concomitant]
  4. LAMICTAL [Concomitant]
  5. METFORMIN HCL [Concomitant]
  6. GLIPIZIDE [Concomitant]
  7. NEXIUM [Concomitant]
  8. ASPIRIN [Concomitant]
  9. LOVAZA [Concomitant]
  10. CLARITIN [Concomitant]

REACTIONS (1)
  - URINE ALCOHOL TEST POSITIVE [None]
